FAERS Safety Report 7693655-X (Version None)
Quarter: 2011Q3

REPORT INFORMATION
  Report Type: 
  Country: None (occurrence: None)
  Receive Date: 20110819
  Receipt Date: 20110817
  Transmission Date: 20111222
  Serious: Yes (Other)
  Sender: FDA-Public Use
  Company Number: US-PFIZER INC-2011157953

PATIENT
  Sex: Female
  Weight: 41.723 kg

DRUGS (3)
  1. KLONOPIN [Concomitant]
     Indication: ANXIETY
     Dosage: UNK
  2. NARDIL [Suspect]
     Indication: NERVOUS SYSTEM DISORDER
     Dosage: 15 MG, 3X/DAY
     Route: 048
     Dates: end: 20101001
  3. NARDIL [Suspect]
     Indication: AFFECTIVE DISORDER
     Dosage: 15 MG, 2X/DAY
     Route: 048
     Dates: start: 20110707

REACTIONS (4)
  - EATING DISORDER [None]
  - DECREASED APPETITE [None]
  - DEPRESSION [None]
  - GALLBLADDER DISORDER [None]
